FAERS Safety Report 16920639 (Version 1)
Quarter: 2019Q4

REPORT INFORMATION
  Report Type: Spontaneous
  Country: GB (occurrence: GB)
  Receive Date: 20191015
  Receipt Date: 20191015
  Transmission Date: 20200122
  Serious: Yes (Other)
  Sender: FDA-Public Use
  Company Number: GB-MYLANLABS-2019M1096726

PATIENT
  Age: 54 Year
  Sex: Male

DRUGS (1)
  1. GLATIRAMER [Suspect]
     Active Substance: GLATIRAMER
     Indication: MULTIPLE SCLEROSIS
     Dosage: 120 MILLIGRAM, QW
     Route: 058

REACTIONS (4)
  - Lymphadenopathy [Recovering/Resolving]
  - Hypersensitivity [Recovering/Resolving]
  - Tonsillar hypertrophy [Recovering/Resolving]
  - Oropharyngeal pain [Recovering/Resolving]
